FAERS Safety Report 12100457 (Version 1)
Quarter: 2016Q1

REPORT INFORMATION
  Report Type: Spontaneous
  Country: US (occurrence: US)
  Receive Date: 20160222
  Receipt Date: 20160222
  Transmission Date: 20160526
  Serious: No
  Sender: FDA-Public Use
  Company Number: US-JNJFOC-20160115055

PATIENT
  Sex: Female
  Weight: 42.64 kg

DRUGS (4)
  1. CALCIPOTRIENE. [Concomitant]
     Active Substance: CALCIPOTRIENE
     Route: 065
  2. LORAZEPAM. [Concomitant]
     Active Substance: LORAZEPAM
     Route: 065
  3. HUMIRA [Suspect]
     Active Substance: ADALIMUMAB
     Indication: PSORIASIS
     Route: 065
  4. STELARA [Suspect]
     Active Substance: USTEKINUMAB
     Indication: PSORIASIS
     Route: 058
     Dates: start: 201404

REACTIONS (2)
  - White blood cell count decreased [Unknown]
  - Arthralgia [Unknown]
